FAERS Safety Report 19005900 (Version 4)
Quarter: 2021Q2

REPORT INFORMATION
  Report Type: Spontaneous
  Country: US (occurrence: US)
  Receive Date: 20210314
  Receipt Date: 20210407
  Transmission Date: 20210717
  Serious: Yes (Other)
  Sender: FDA-Public Use
  Company Number: US-EMD SERONO-9221789

PATIENT
  Sex: Male

DRUGS (2)
  1. SEROSTIM [Suspect]
     Active Substance: SOMATROPIN
     Indication: TESTICULAR DISORDER
     Dosage: UNDER THE SKIN
     Route: 058
     Dates: start: 20190726
  2. SEROSTIM [Suspect]
     Active Substance: SOMATROPIN
     Indication: CACHEXIA
     Dosage: UNDER THE SKIN
     Route: 058
     Dates: start: 20200625

REACTIONS (12)
  - Diabetes mellitus [Unknown]
  - Weight decreased [Unknown]
  - Gastrointestinal bacterial overgrowth [Unknown]
  - Fatigue [Not Recovered/Not Resolved]
  - Headache [Unknown]
  - Energy increased [Unknown]
  - Bone pain [Unknown]
  - Arthralgia [Unknown]
  - Hypersomnia [Unknown]
  - Malnutrition [Unknown]
  - Myalgia [Unknown]
  - Malaise [Unknown]
